FAERS Safety Report 18619018 (Version 1)
Quarter: 2020Q4

REPORT INFORMATION
  Report Type: Spontaneous
  Country: US (occurrence: US)
  Receive Date: 20201215
  Receipt Date: 20201215
  Transmission Date: 20210114
  Serious: Yes (Death, Life-Threatening, Hospitalization)
  Sender: FDA-Public Use
  Company Number: US-MYLANLABS-2020M1101943

PATIENT
  Age: 55 Year
  Sex: Male

DRUGS (10)
  1. CASPOFUNGIN [Suspect]
     Active Substance: CASPOFUNGIN
     Indication: DISSEMINATED MUCORMYCOSIS
     Dosage: 50 MILLIGRAM, QD
     Route: 065
  2. SARGRAMOSTIM [Suspect]
     Active Substance: SARGRAMOSTIM
     Indication: PANCYTOPENIA
     Dosage: UNK
     Route: 065
  3. ISAVUCONAZOLE [Concomitant]
     Active Substance: ISAVUCONAZOLE
     Indication: DISSEMINATED MUCORMYCOSIS
     Dosage: 372 MILLIGRAM, QD
     Route: 065
  4. TACROLIMUS. [Suspect]
     Active Substance: TACROLIMUS
     Dosage: UNK
  5. METHYLPREDNISOLONE. [Suspect]
     Active Substance: METHYLPREDNISOLONE
     Dosage: METHYLPREDNISOLONE WAS TAPERED
  6. POSACONAZOLE [Concomitant]
     Active Substance: POSACONAZOLE
     Indication: PNEUMONIA FUNGAL
     Dosage: UNK
     Route: 065
  7. METHYLPREDNISOLONE. [Suspect]
     Active Substance: METHYLPREDNISOLONE
     Indication: IMMUNOSUPPRESSANT DRUG THERAPY
     Dosage: 40 MILLIGRAM, QD
     Route: 065
  8. VORICONAZOLE. [Suspect]
     Active Substance: VORICONAZOLE
     Indication: PNEUMONIA FUNGAL
     Dosage: UNK
     Route: 065
  9. TACROLIMUS. [Suspect]
     Active Substance: TACROLIMUS
     Indication: PROPHYLAXIS AGAINST GRAFT VERSUS HOST DISEASE
     Dosage: 2.5 MILLIGRAM, QD
     Route: 065
  10. AMPHOTERICIN-B [Suspect]
     Active Substance: AMPHOTERICIN B
     Indication: DISSEMINATED MUCORMYCOSIS
     Dosage: 10 MILLIGRAM/KILOGRAM, QD
     Route: 065

REACTIONS (2)
  - Drug ineffective [Unknown]
  - Disseminated mucormycosis [Fatal]
